FAERS Safety Report 6953159-6 (Version None)
Quarter: 2010Q3

REPORT INFORMATION
  Report Type: 
  Country: None (occurrence: None)
  Receive Date: 20100829
  Receipt Date: 20100531
  Transmission Date: 20110219
  Serious: No
  Sender: FDA-Public Use
  Company Number: US-ABBOTT-10P-163-0648143-00

PATIENT
  Sex: Male
  Weight: 88.076 kg

DRUGS (3)
  1. NIASPAN [Suspect]
     Indication: ARTERIOSCLEROSIS
     Dosage: 1500 MG, DAILY
     Dates: start: 20100525
  2. ASPIRIN [Concomitant]
     Indication: PRODUCT USED FOR UNKNOWN INDICATION
  3. COUMADIN [Concomitant]
     Indication: PRODUCT USED FOR UNKNOWN INDICATION

REACTIONS (5)
  - ERYTHEMA [None]
  - FEELING HOT [None]
  - PRURITUS [None]
  - RASH [None]
  - URTICARIA [None]
